FAERS Safety Report 15238299 (Version 1)
Quarter: 2018Q3

REPORT INFORMATION
  Report Type: Spontaneous
  Country: DE (occurrence: DE)
  Receive Date: 20180803
  Receipt Date: 20180803
  Transmission Date: 20181010
  Serious: Yes (Other)
  Sender: FDA-Public Use
  Company Number: DE-AUROBINDO-AUR-APL-2018-038849

PATIENT
  Age: 12 Year
  Sex: Female
  Weight: 29.3 kg

DRUGS (6)
  1. OMEPRAZOL                          /00661201/ [Concomitant]
     Active Substance: OMEPRAZOLE
     Indication: PROPHYLAXIS
     Dosage: DAILY DOSE: 20 MG MILLGRAM(S) EVERY DAYS
     Route: 048
     Dates: start: 20140401
  2. ROACTEMRA [Suspect]
     Active Substance: TOCILIZUMAB
     Indication: STILL^S DISEASE
     Dosage: DAILY DOSE: 360 MG MILLGRAM(S) EVERY 2 WEEKS
     Route: 042
     Dates: start: 20130430
  3. ROACTEMRA [Suspect]
     Active Substance: TOCILIZUMAB
     Dosage: DAILY DOSE: 360 MG MILLGRAM(S) EVERY 2 WEEKS
     Route: 042
     Dates: start: 20140101
  4. INDOMETACIN [Concomitant]
     Active Substance: INDOMETHACIN
     Indication: STILL^S DISEASE
     Route: 065
     Dates: start: 20130401
  5. IBUPROFEN. [Suspect]
     Active Substance: IBUPROFEN
     Indication: STILL^S DISEASE
     Dosage: 400 MILLIGRAM
     Route: 048
     Dates: start: 20161019
  6. METHOTREXATE. [Suspect]
     Active Substance: METHOTREXATE
     Indication: JUVENILE IDIOPATHIC ARTHRITIS
     Dosage: DAILY DOSE: 1 DF DOSAGE FORM EVERY WEEKS
     Route: 058
     Dates: start: 20130213, end: 20141105

REACTIONS (3)
  - Conjunctivitis [Recovered/Resolved]
  - Headache [Recovered/Resolved]
  - Sinusitis [Recovered/Resolved]

NARRATIVE: CASE EVENT DATE: 201611
